FAERS Safety Report 5194010-7 (Version None)
Quarter: 2006Q4

REPORT INFORMATION
  Report Type: 
  Country: None (occurrence: None)
  Receive Date: 20061228
  Receipt Date: 20061110
  Transmission Date: 20070319
  Serious: No
  Sender: FDA-Public Use
  Company Number: US-GLAXOSMITHKLINE-A0627024A

PATIENT
  Sex: Female

DRUGS (10)
  1. FLOVENT [Suspect]
     Indication: ASTHMA
     Dosage: 2PUFF TWICE PER DAY
     Route: 055
     Dates: start: 20010101
  2. ZIAC [Concomitant]
  3. CRESTOR [Concomitant]
  4. MULTI-VITAMIN [Concomitant]
  5. CALCIUM WITH VITAMIN D [Concomitant]
  6. VITAMIN E [Concomitant]
  7. ASCORBIC ACID [Concomitant]
  8. ASPIRIN [Concomitant]
  9. FISH OIL [Concomitant]
  10. ZYRTEC [Concomitant]

REACTIONS (4)
  - COUGH [None]
  - DRUG INEFFECTIVE [None]
  - DYSPNOEA [None]
  - PHARMACEUTICAL PRODUCT COMPLAINT [None]
